FAERS Safety Report 16179857 (Version 1)
Quarter: 2019Q2

REPORT INFORMATION
  Report Type: Spontaneous
  Country: US (occurrence: US)
  Receive Date: 20190409
  Receipt Date: 20190409
  Transmission Date: 20190711
  Serious: Yes (Other)
  Sender: FDA-Public Use
  Company Number: None

PATIENT
  Age: 67 Year
  Sex: Male
  Weight: 93.92 kg

DRUGS (11)
  1. DEXAMETHASONE. [Concomitant]
     Active Substance: DEXAMETHASONE
  2. VITAMIN D NOS [Concomitant]
     Active Substance: VITAMIN D NOS
  3. TEMOZOLOMIDE. [Suspect]
     Active Substance: TEMOZOLOMIDE
     Indication: BRAIN NEOPLASM MALIGNANT
     Route: 048
     Dates: start: 20181009, end: 20190409
  4. FAMOTIDINE. [Concomitant]
     Active Substance: FAMOTIDINE
  5. SENOKOT D [Concomitant]
  6. LANTUS SOLOSTAR [Concomitant]
     Active Substance: INSULIN GLARGINE
  7. LYRICA [Concomitant]
     Active Substance: PREGABALIN
  8. ADMELOG SOLOSTAR [Concomitant]
  9. MIRALAX [Concomitant]
     Active Substance: POLYETHYLENE GLYCOL 3350
  10. KEPPRA [Concomitant]
     Active Substance: LEVETIRACETAM
  11. GLUTOSE 15 [Concomitant]

REACTIONS (1)
  - Disease progression [None]

NARRATIVE: CASE EVENT DATE: 20190409
